FAERS Safety Report 4828246-9 (Version None)
Quarter: 2005Q4

REPORT INFORMATION
  Report Type: 
  Country: None (occurrence: None)
  Receive Date: 20051115
  Receipt Date: 20050705
  Transmission Date: 20060501
  Serious: No
  Sender: FDA-Public Use
  Company Number: US-BRISTOL-MYERS SQUIBB COMPANY-13025374

PATIENT
  Sex: Male
  Weight: 91 kg

DRUGS (5)
  1. SUSTIVA [Suspect]
     Dates: start: 20040101
  2. LIPITOR [Concomitant]
  3. BACTRIM [Concomitant]
  4. EMTRIVA [Concomitant]
  5. ZIAGEN [Concomitant]

REACTIONS (1)
  - DRUG SCREEN POSITIVE [None]
